FAERS Safety Report 7256837-7 (Version None)
Quarter: 2011Q1

REPORT INFORMATION
  Report Type: 
  Country: None (occurrence: None)
  Receive Date: 20110129
  Receipt Date: 20100611
  Transmission Date: 20110831
  Serious: No
  Sender: FDA-Public Use
  Company Number: US-ABBOTT-10P-163-0652162-00

PATIENT
  Sex: Female

DRUGS (3)
  1. HUMIRA [Suspect]
  2. IMURAN [Suspect]
     Indication: PRODUCT USED FOR UNKNOWN INDICATION
     Dosage: DECREASING DOSE
  3. HUMIRA [Suspect]
     Indication: CROHN'S DISEASE
     Dates: start: 20091101

REACTIONS (7)
  - DIARRHOEA [None]
  - RECTAL HAEMORRHAGE [None]
  - KIDNEY INFECTION [None]
  - DRUG INEFFECTIVE [None]
  - MUSCLE SPASMS [None]
  - BRONCHITIS CHRONIC [None]
  - SINUSITIS [None]
